FAERS Safety Report 9322032 (Version 1)
Quarter: 2013Q2

REPORT INFORMATION
  Report Type: Spontaneous
  Country: ES (occurrence: ES)
  Receive Date: 20130531
  Receipt Date: 20130531
  Transmission Date: 20140414
  Serious: Yes (Death, Hospitalization, Other)
  Sender: FDA-Public Use
  Company Number: ES-ROXANE LABORATORIES, INC.-2013-RO-00846RO

PATIENT
  Age: 36 Year
  Sex: Female

DRUGS (15)
  1. HYDROXYUREA [Suspect]
     Indication: CHRONIC MYELOID LEUKAEMIA
  2. CYCLOPHOSPHAMIDE TABLETS USP [Suspect]
     Indication: STEM CELL TRANSPLANT
  3. METHOTREXATE [Suspect]
     Indication: PROPHYLAXIS AGAINST GRAFT VERSUS HOST DISEASE
  4. FLUCONAZOLE [Suspect]
     Indication: ORAL CANDIDIASIS
     Dosage: 100 MG
  5. INTERFERON ALPHA-2B [Suspect]
     Indication: CHRONIC MYELOID LEUKAEMIA
  6. BUSULFAN [Suspect]
     Indication: STEM CELL TRANSPLANT
     Route: 048
  7. CYCLOSPORINE [Suspect]
     Indication: PROPHYLAXIS AGAINST GRAFT VERSUS HOST DISEASE
  8. ITRACONAZOLE [Suspect]
     Indication: ORAL CANDIDIASIS
     Dosage: 100 MG
     Route: 048
     Dates: start: 20030306
  9. AMPHOTERICIN B [Suspect]
     Indication: BRONCHOPULMONARY ASPERGILLOSIS
  10. AMPHOTERICIN B [Suspect]
     Dates: start: 200403, end: 200409
  11. CASPOFUNGIN [Suspect]
     Indication: BRONCHOPULMONARY ASPERGILLOSIS
  12. CASPOFUNGIN [Suspect]
     Dates: start: 200405
  13. VORICONAZOLE [Suspect]
     Indication: BRONCHOPULMONARY ASPERGILLOSIS
     Route: 042
  14. VORICONAZOLE [Suspect]
     Dosage: 400 MG
     Route: 048
  15. VORICONAZOLE [Suspect]
     Dates: end: 200403

REACTIONS (12)
  - Death [Fatal]
  - Bronchopulmonary aspergillosis [Unknown]
  - Multiple-drug resistance [Unknown]
  - Graft versus host disease in skin [Unknown]
  - Cytomegalovirus test positive [Unknown]
  - Oral candidiasis [Unknown]
  - Graft versus host disease in lung [Unknown]
  - Pseudomonas infection [Unknown]
  - Enterobacter infection [Unknown]
  - Pneumonia [Unknown]
  - Respiratory failure [Unknown]
  - Aspergillus infection [Unknown]
